FAERS Safety Report 16402055 (Version 1)
Quarter: 2019Q2

REPORT INFORMATION
  Report Type: Report from Study
  Country: CL (occurrence: CL)
  Receive Date: 20190607
  Receipt Date: 20190607
  Transmission Date: 20190711
  Serious: Yes (Other)
  Sender: FDA-Public Use
  Company Number: PHHY2019CL127463

PATIENT
  Sex: Male
  Weight: 33 kg

DRUGS (1)
  1. OMNITROPE [Suspect]
     Active Substance: SOMATROPIN
     Indication: BODY HEIGHT BELOW NORMAL
     Dosage: 5.1 IU, QD
     Route: 058
     Dates: start: 20171224

REACTIONS (1)
  - Neoplasm [Unknown]
